FAERS Safety Report 20934289 (Version 1)
Quarter: 2022Q2

REPORT INFORMATION
  Report Type: Spontaneous
  Country: US (occurrence: None)
  Receive Date: 20220607
  Receipt Date: 20220607
  Transmission Date: 20220720
  Serious: Yes (Hospitalization)
  Sender: FDA-Public Use
  Company Number: None

PATIENT
  Sex: Male

DRUGS (12)
  1. CAPECITABINE [Suspect]
     Active Substance: CAPECITABINE
     Indication: Colon cancer
     Dosage: TAKE 3 TABLETS BY MOUTH 2 TIMES A DAY FOR 14 DAYS, THEN OFF 7 DAYS, THEN START OVER. TAKE WITH FOOD
     Route: 048
     Dates: start: 20220126, end: 2022
  2. DICYCLOMINE TAB [Concomitant]
  3. DILTIAZEM ER TAB [Concomitant]
  4. ELIQUIS [Concomitant]
     Active Substance: APIXABAN
  5. GEMFIBROZIL TAB [Concomitant]
  6. HYDRALAZINE TAB [Concomitant]
  7. HYDROCO/APAP TAB [Concomitant]
  8. INCRUSE ELPT INH [Concomitant]
  9. MEGESTROL AC SUS [Concomitant]
  10. METOPROL SUC TAB ER [Concomitant]
  11. ONDANSETRON TAB [Concomitant]
  12. PRAVASTATIN [Concomitant]
     Active Substance: PRAVASTATIN

REACTIONS (1)
  - Adverse drug reaction [None]
